FAERS Safety Report 18064667 (Version 1)
Quarter: 2020Q3

REPORT INFORMATION
  Report Type: Spontaneous
  Country: NL (occurrence: NL)
  Receive Date: 20200724
  Receipt Date: 20200724
  Transmission Date: 20201103
  Serious: Yes (Hospitalization)
  Sender: FDA-Public Use
  Company Number: NL-MYLANLABS-2020M1066627

PATIENT
  Sex: Female
  Weight: 62 kg

DRUGS (4)
  1. CALCIUMCARBONAAT [Concomitant]
     Dosage: 500MG1DD2
  2. DOXYCYCLINE. [Suspect]
     Active Substance: DOXYCYCLINE
     Indication: ARTHROPOD BITE
     Dosage: EENMALIG 1, EENMALIG 200 MG
     Dates: start: 20200625
  3. ALFACALCIDOL [Concomitant]
     Active Substance: ALFACALCIDOL
     Dosage: UNK
  4. DENOSUMAB [Concomitant]
     Active Substance: DENOSUMAB
     Dosage: 1X/3MND

REACTIONS (3)
  - Pyrexia [Recovering/Resolving]
  - Rash [Recovering/Resolving]
  - Off label use [Unknown]
